FAERS Safety Report 9472757 (Version 2)
Quarter: 2013Q3

REPORT INFORMATION
  Report Type: Spontaneous
  Country: US (occurrence: US)
  Receive Date: 20130823
  Receipt Date: 20130930
  Transmission Date: 20140515
  Serious: No
  Sender: FDA-Public Use
  Company Number: US-PFIZER INC-2013242881

PATIENT
  Sex: Female

DRUGS (1)
  1. LIPITOR [Suspect]
     Dosage: 20 MG, UNK

REACTIONS (1)
  - Nervousness [Unknown]
